FAERS Safety Report 6023579 (Version 32)
Quarter: 2013Q3

REPORT INFORMATION
  Report Type: Spontaneous
  Country: US (occurrence: US)
  Receive Date: 20040126
  Receipt Date: 20130911
  Transmission Date: 20140515
  Serious: Yes (Life-Threatening, Hospitalization, Disabling, Other)
  Sender: FDA-Public Use
  Company Number: US-ROCHE-356278

PATIENT
  Age: 17 Year
  Sex: Female
  Weight: 65.8 kg

DRUGS (1)
  1. ACCUTANE [Suspect]
     Indication: ACNE
     Route: 048
     Dates: start: 19961229, end: 19970221

REACTIONS (59)
  - Benign intracranial hypertension [Unknown]
  - Vasculitis [Unknown]
  - Granulomatosis with polyangiitis [Unknown]
  - Hypertension [Recovered/Resolved]
  - Nervous system disorder [Recovered/Resolved]
  - Systemic lupus erythematosus [Recovered/Resolved]
  - Pancreatitis [Recovered/Resolved]
  - Lupus nephritis [Recovered/Resolved]
  - Inflammatory bowel disease [Unknown]
  - Nervous system disorder [Unknown]
  - Autoimmune disorder [Unknown]
  - Systemic lupus erythematosus [Unknown]
  - Ill-defined disorder [Not Recovered/Not Resolved]
  - Colitis ulcerative [Recovering/Resolving]
  - Tricuspid valve incompetence [Unknown]
  - Ill-defined disorder [Recovered/Resolved]
  - Staphylococcal infection [Recovered/Resolved]
  - Vulvovaginal mycotic infection [Recovered/Resolved]
  - Mitral valve incompetence [Unknown]
  - Aortic valve incompetence [Unknown]
  - Pericardial effusion [Recovered/Resolved]
  - Confusional state [Recovered/Resolved]
  - Agitation [Recovered/Resolved]
  - Hepatitis [Recovered/Resolved]
  - Hallucination [Recovered/Resolved]
  - Renal failure [Recovered/Resolved]
  - Dermal cyst [Unknown]
  - Haemolytic anaemia [Unknown]
  - Cushing^s syndrome [Unknown]
  - Pancytopenia [Unknown]
  - Nasal dryness [Unknown]
  - Headache [Not Recovered/Not Resolved]
  - Polyp [Not Recovered/Not Resolved]
  - Dysthymic disorder [Not Recovered/Not Resolved]
  - Depression [Not Recovered/Not Resolved]
  - Myopia [Unknown]
  - Dysphagia [Unknown]
  - Cervical radiculopathy [Unknown]
  - Intervertebral disc degeneration [Unknown]
  - Urethral prolapse [Recovered/Resolved]
  - Urogenital prolapse [Unknown]
  - Irritable bowel syndrome [Unknown]
  - Joint swelling [Unknown]
  - Anal fissure [Unknown]
  - Megacolon [Unknown]
  - Encopresis [Unknown]
  - Syncope [Unknown]
  - Anaemia megaloblastic [Unknown]
  - Amnesia [Unknown]
  - Dysphemia [Unknown]
  - Clumsiness [Unknown]
  - Nightmare [Unknown]
  - Irritability [Unknown]
  - Aphasia [Unknown]
  - Fatigue [Unknown]
  - Stress [Unknown]
  - Chapped lips [Unknown]
  - Conjunctivitis [Unknown]
  - Dry skin [Unknown]
